FAERS Safety Report 8954654 (Version 1)
Quarter: 2012Q4

REPORT INFORMATION
  Report Type: 
  Country: US (occurrence: US)
  Receive Date: 20121210
  Receipt Date: 20121210
  Transmission Date: 20130627
  Serious: No
  Sender: FDA-Public Use
  Company Number: PHEH2012US024012

PATIENT
  Sex: Female

DRUGS (7)
  1. TASIGNA [Suspect]
     Dosage: 200 mg, BID
     Route: 048
  2. LUNESTA [Concomitant]
  3. LORTAB [Concomitant]
  4. CALCIFEROL VIT D [Concomitant]
  5. ACIPHEX [Concomitant]
  6. SAVELLA [Concomitant]
  7. VERAPAMIL [Concomitant]

REACTIONS (3)
  - Pain [Unknown]
  - Headache [Unknown]
  - Fatigue [Unknown]
